FAERS Safety Report 9934068 (Version 2)
Quarter: 2014Q1

REPORT INFORMATION
  Report Type: Spontaneous
  Country: US (occurrence: US)
  Receive Date: 20140228
  Receipt Date: 20140228
  Transmission Date: 20141002
  Serious: No
  Sender: FDA-Public Use
  Company Number: US-ABBVIE-13P-163-1087141-00

PATIENT
  Age: 71 Year
  Sex: Male
  Weight: 117.59 kg

DRUGS (9)
  1. ANDROGEL [Suspect]
     Indication: BLOOD TESTOSTERONE DECREASED
     Dosage: 4 PUMPS ONCE A DAY
     Route: 061
     Dates: end: 20130415
  2. ANDROGEL [Suspect]
     Indication: HYPOGONADISM
  3. ACTOS [Suspect]
     Indication: TYPE 2 DIABETES MELLITUS
     Route: 048
     Dates: end: 20120710
  4. ACTOS [Suspect]
     Route: 048
     Dates: start: 20120710, end: 20130101
  5. FORMALIN [Concomitant]
     Indication: DIABETES MELLITUS
  6. GLIPIZIDE [Concomitant]
     Indication: DIABETES MELLITUS
  7. JANUVIA [Concomitant]
     Indication: DIABETES MELLITUS
  8. LEVEMIR [Concomitant]
     Indication: DIABETES MELLITUS
  9. SYNTHROID [Concomitant]
     Indication: HYPOTHYROIDISM

REACTIONS (2)
  - Blood glucose increased [Not Recovered/Not Resolved]
  - Blood testosterone decreased [Not Recovered/Not Resolved]
